FAERS Safety Report 8318085-9 (Version None)
Quarter: 2012Q2

REPORT INFORMATION
  Report Type: 
  Country: None (occurrence: None)
  Receive Date: 20120427
  Receipt Date: 20120419
  Transmission Date: 20120825
  Serious: Yes (Death)
  Sender: FDA-Public Use
  Company Number: US-BAYER-2012-038828

PATIENT
  Sex: Female

DRUGS (3)
  1. PIPERACILLIN AND TAZOBACTAM [Concomitant]
     Indication: SEPTIC SHOCK
  2. CIPROFLOXACIN [Suspect]
     Indication: PYELONEPHRITIS
     Dosage: 400 MG, BID
     Route: 042
  3. CORTICOSTEROIDS [Concomitant]
     Dosage: STRESS DOSE

REACTIONS (2)
  - UROSEPSIS [None]
  - SEPTIC SHOCK [None]
